FAERS Safety Report 11060933 (Version 2)
Quarter: 2015Q2

REPORT INFORMATION
  Report Type: Spontaneous
  Country: US (occurrence: US)
  Receive Date: 20150424
  Receipt Date: 20150624
  Transmission Date: 20150821
  Serious: No
  Sender: FDA-Public Use
  Company Number: US-ASTRAZENECA-2015SE36026

PATIENT
  Age: 23955 Day
  Sex: Female
  Weight: 65.8 kg

DRUGS (1)
  1. NEXIUM [Suspect]
     Active Substance: ESOMEPRAZOLE MAGNESIUM
     Indication: CHOLECYSTECTOMY
     Route: 048
     Dates: end: 201504

REACTIONS (5)
  - Peripheral swelling [Unknown]
  - Mobility decreased [Unknown]
  - Intentional product misuse [Unknown]
  - Pain in extremity [Not Recovered/Not Resolved]
  - Musculoskeletal stiffness [Unknown]

NARRATIVE: CASE EVENT DATE: 201501
